FAERS Safety Report 19265326 (Version 2)
Quarter: 2021Q2

REPORT INFORMATION
  Report Type: Spontaneous
  Country: US (occurrence: US)
  Receive Date: 20210517
  Receipt Date: 20210517
  Transmission Date: 20210717
  Serious: Yes (Hospitalization, Disabling, Other)
  Sender: FDA-Public Use
  Company Number: US-MICRO LABS LIMITED-ML2021-01494

PATIENT
  Age: 23 Year
  Sex: Female

DRUGS (7)
  1. EPINEPHRINE. [Concomitant]
     Active Substance: EPINEPHRINE
     Indication: CARDIOGENIC SHOCK
  2. NOREPINEPHRINE. [Concomitant]
     Active Substance: NOREPINEPHRINE
     Indication: CARDIOGENIC SHOCK
  3. DOBUTAMINE [Concomitant]
     Active Substance: DOBUTAMINE HYDROCHLORIDE
     Indication: CARDIOGENIC SHOCK
  4. SOYA OIL EMULSION [Concomitant]
     Active Substance: SOYBEAN OIL
     Indication: CARDIOGENIC SHOCK
  5. BUPROPION. [Suspect]
     Active Substance: BUPROPION
     Indication: DEPRESSION
     Dosage: 100 TABLETS OF EXTENDED?RELEASE BUPROPION 150 MG
     Route: 048
  6. PHENYLEPHRINE [Concomitant]
     Active Substance: PHENYLEPHRINE HYDROCHLORIDE
     Indication: CARDIOGENIC SHOCK
  7. VASOPRESSIN. [Concomitant]
     Active Substance: VASOPRESSIN
     Indication: CARDIOGENIC SHOCK

REACTIONS (10)
  - Cardiomyopathy [Unknown]
  - Left ventricular dilatation [Unknown]
  - Intentional overdose [Unknown]
  - Hypokinesia [Unknown]
  - Status epilepticus [Unknown]
  - Bundle branch block left [Unknown]
  - Tachycardia [Unknown]
  - Cardiogenic shock [Unknown]
  - Electrocardiogram QRS complex prolonged [Unknown]
  - Hallucination [Unknown]
